FAERS Safety Report 12239377 (Version 2)
Quarter: 2016Q2

REPORT INFORMATION
  Report Type: Spontaneous
  Country: US (occurrence: US)
  Receive Date: 20160405
  Receipt Date: 20160407
  Transmission Date: 20160815
  Serious: Yes (Other)
  Sender: FDA-Public Use
  Company Number: US-BAYER-2016-062992

PATIENT
  Sex: Female

DRUGS (1)
  1. MIRENA [Suspect]
     Active Substance: LEVONORGESTREL
     Dosage: 20 MCG/24HR, CONT
     Route: 015
     Dates: start: 201211

REACTIONS (9)
  - Abdominal pain [None]
  - Adverse event [None]
  - Arthralgia [None]
  - Ear discomfort [None]
  - Systemic lupus erythematosus [None]
  - Burning sensation [None]
  - Amnesia [None]
  - Headache [None]
  - Dysphonia [None]

NARRATIVE: CASE EVENT DATE: 201303
